FAERS Safety Report 9338614 (Version 1)
Quarter: 2013Q2

REPORT INFORMATION
  Report Type: Report from Study
  Country: IN (occurrence: IN)
  Receive Date: 20130610
  Receipt Date: 20130610
  Transmission Date: 20140414
  Serious: Yes (Other)
  Sender: FDA-Public Use
  Company Number: IN-ROCHE-1233325

PATIENT
  Age: 58 Year
  Sex: Female

DRUGS (3)
  1. LUCENTIS [Suspect]
     Indication: AGE-RELATED MACULAR DEGENERATION
     Route: 050
     Dates: start: 20130225
  2. LUCENTIS [Suspect]
     Route: 050
     Dates: start: 20130416, end: 20130416
  3. AVASTIN [Concomitant]
     Indication: AGE-RELATED MACULAR DEGENERATION
     Route: 065

REACTIONS (2)
  - Retinal haemorrhage [Recovering/Resolving]
  - Drug ineffective [Unknown]
